FAERS Safety Report 4944176-6 (Version None)
Quarter: 2006Q1

REPORT INFORMATION
  Report Type: 
  Country: None (occurrence: None)
  Receive Date: 20060309
  Receipt Date: 20060302
  Transmission Date: 20060701
  Serious: Yes (Other)
  Sender: FDA-Public Use
  Company Number: 2006BH004269

PATIENT

DRUGS (1)
  1. ROBINUL [Suspect]

REACTIONS (3)
  - ANAESTHETIC COMPLICATION [None]
  - MUSCLE DISORDER [None]
  - PARALYSIS [None]
